FAERS Safety Report 12392236 (Version 1)
Quarter: 2016Q2

REPORT INFORMATION
  Report Type: Spontaneous
  Country: US (occurrence: US)
  Receive Date: 20160523
  Receipt Date: 20160523
  Transmission Date: 20160815
  Serious: No
  Sender: FDA-Public Use
  Company Number: US-TEVA-651471USA

PATIENT
  Age: 4 Year
  Sex: Female

DRUGS (1)
  1. PENICILLIN [Suspect]
     Active Substance: PENICILLIN
     Dosage: 10 ML DAILY; 250 MG/5ML
     Dates: start: 201509

REACTIONS (1)
  - Tooth discolouration [Unknown]
